FAERS Safety Report 7529876-6 (Version None)
Quarter: 2011Q2

REPORT INFORMATION
  Report Type: 
  Country: None (occurrence: None)
  Receive Date: 20110607
  Receipt Date: 20110525
  Transmission Date: 20111010
  Serious: Yes (Other)
  Sender: FDA-Public Use
  Company Number: US-SHIRE-ALL1-2011-01621

PATIENT
  Sex: Female
  Weight: 72.562 kg

DRUGS (9)
  1. TENORMIN [Concomitant]
     Indication: PAIN PROPHYLAXIS
     Dosage: UNK, UNKNOWN
     Route: 048
     Dates: start: 19910101
  2. LORAZEPAM [Concomitant]
     Indication: ANXIETY
     Dosage: 0.5 MG, 3X/DAY:TID
     Route: 048
     Dates: start: 19910101
  3. DARVOCET [Concomitant]
     Indication: ARTHRALGIA
     Dosage: UNK, 2X/DAY:BID
     Route: 048
     Dates: start: 20060101, end: 20100101
  4. LORTAB [Concomitant]
     Indication: ARTHRALGIA
     Dosage: UNK, 2X/DAY:BID
     Route: 048
     Dates: start: 20100101
  5. AMBIEN [Concomitant]
     Indication: SLEEP DISORDER
     Dosage: 2.5 MG, AS REQ'D (AT NIGHT)
     Route: 048
     Dates: start: 20030101
  6. VYVANSE [Suspect]
     Dosage: 30 MG, 1X/DAY:QD
     Route: 048
     Dates: end: 20100101
  7. VYVANSE [Suspect]
     Dosage: 30 MG, 2X/DAY:BID
     Route: 048
     Dates: start: 20100101
  8. PAXIL [Concomitant]
     Indication: ANXIETY
     Dosage: UNK, 1X/DAY:QD
     Route: 048
     Dates: start: 20010101
  9. VYVANSE [Suspect]
     Indication: ATTENTION DEFICIT/HYPERACTIVITY DISORDER
     Dosage: 20 MG, UNKNOWN
     Route: 048
     Dates: start: 20070101

REACTIONS (6)
  - AMNESIA [None]
  - FIBROMYALGIA [None]
  - CORRECTIVE LENS USER [None]
  - VISUAL FIELD DEFECT [None]
  - INAPPROPRIATE SCHEDULE OF DRUG ADMINISTRATION [None]
  - DRUG EFFECT DECREASED [None]
